FAERS Safety Report 5493392-6 (Version None)
Quarter: 2007Q4

REPORT INFORMATION
  Report Type: 
  Country: None (occurrence: None)
  Receive Date: 20071022
  Receipt Date: 20071022
  Transmission Date: 20080405
  Serious: No
  Sender: FDA-Public Use
  Company Number: None

PATIENT
  Age: 65 Year
  Sex: Male

DRUGS (5)
  1. EZETIMIBE [Suspect]
     Dates: start: 20040319, end: 20061013
  2. SIMVASTATIN [Suspect]
  3. ALLOPURINOL [Concomitant]
  4. AMITRIPTYLINE HCL [Concomitant]
  5. MELOXICAM [Concomitant]

REACTIONS (6)
  - ARTHRALGIA [None]
  - CHOLELITHIASIS [None]
  - CHRONIC HEPATITIS [None]
  - DIARRHOEA [None]
  - LIVER INJURY [None]
  - MYALGIA [None]
